FAERS Safety Report 5542350-1 (Version None)
Quarter: 2007Q4

REPORT INFORMATION
  Report Type: 
  Country: None (occurrence: None)
  Receive Date: 20071129
  Receipt Date: 20070424
  Transmission Date: 20080405
  Serious: Yes (Hospitalization, Other)
  Sender: FDA-Public Use
  Company Number: US200702001012

PATIENT
  Age: 27 Year
  Sex: Male
  Weight: 113.4 kg

DRUGS (3)
  1. ZYPREXA [Suspect]
     Dosage: 2.5 MG, 5 MG
     Dates: start: 20030401, end: 20050301
  2. PAXIL [Concomitant]
  3. NAVANE (THIOTIXENE) [Concomitant]

REACTIONS (6)
  - DIABETES MELLITUS [None]
  - DIABETIC COMA [None]
  - DIABETIC KETOACIDOSIS [None]
  - METABOLIC DISORDER [None]
  - PANCREATITIS [None]
  - WEIGHT DECREASED [None]
